FAERS Safety Report 9761599 (Version 2)
Quarter: 2013Q4

REPORT INFORMATION
  Report Type: Report from Study
  Country: IT (occurrence: IT)
  Receive Date: 20131216
  Receipt Date: 20131216
  Transmission Date: 20140711
  Serious: Yes (Life-Threatening, Hospitalization)
  Sender: FDA-Public Use
  Company Number: IT-BRISTOL-MYERS SQUIBB COMPANY-19832674

PATIENT
  Age: 57 Year
  Sex: Male
  Weight: 102 kg

DRUGS (10)
  1. NIVOLUMAB [Suspect]
     Indication: METASTATIC MALIGNANT MELANOMA
     Dosage: LAST DOSE:12NOV13
     Route: 042
     Dates: start: 20131015, end: 20131112
  2. IPILIMUMAB [Suspect]
     Indication: METASTATIC MALIGNANT MELANOMA
     Dosage: LAST DOSE:12NOV13
     Route: 042
     Dates: start: 20131015, end: 20131112
  3. BLINDED: PLACEBO [Suspect]
     Indication: METASTATIC MALIGNANT MELANOMA
     Dosage: LAST DOSE:12NOV13?NO OF DOSE NIVOLUMAB:4?IPILIMUMAB:2
     Route: 042
     Dates: start: 20131015, end: 20131112
  4. INSULIN [Concomitant]
  5. XANAX [Concomitant]
     Dates: start: 20130914
  6. OKI [Concomitant]
     Dates: start: 20130914
  7. PANTORC [Concomitant]
     Dates: start: 20130914
  8. ISOPTIN [Concomitant]
     Dates: start: 20130914
  9. PLASIL [Concomitant]
     Dates: start: 20131025
  10. TRAMADOL HCL + ACETAMINOPHEN [Concomitant]
     Dates: start: 20130914

REACTIONS (1)
  - Diabetic coma [Recovered/Resolved with Sequelae]
